FAERS Safety Report 11493545 (Version 1)
Quarter: 2015Q3

REPORT INFORMATION
  Report Type: Spontaneous
  Country: US (occurrence: US)
  Receive Date: 20150911
  Receipt Date: 20150911
  Transmission Date: 20151125
  Serious: No
  Sender: FDA-Public Use
  Company Number: US-ROCHE-693309

PATIENT
  Age: 53 Year
  Sex: Male
  Weight: 57.6 kg

DRUGS (3)
  1. COPEGUS [Suspect]
     Active Substance: RIBAVIRIN
     Indication: HEPATITIS C
     Dosage: IN DIVIDED DOSES. DATE OF LAST DOSE:29 JANUARY 2011.
     Route: 048
  2. PEGASYS [Suspect]
     Active Substance: PEGINTERFERON ALFA-2A
     Indication: HEPATITIS C
     Dosage: DATE OF LAST DOSE:29 JANUARY 2011.
     Route: 065
  3. INCIVEK [Concomitant]
     Active Substance: TELAPREVIR

REACTIONS (8)
  - Blindness transient [Unknown]
  - Arthralgia [Unknown]
  - Red blood cell count decreased [Unknown]
  - Anaemia [Unknown]
  - Weight decreased [Unknown]
  - Blister [Unknown]
  - White blood cell count decreased [Recovered/Resolved]
  - Terminal insomnia [Unknown]

NARRATIVE: CASE EVENT DATE: 20100306
